FAERS Safety Report 21448574 (Version 1)
Quarter: 2022Q4

REPORT INFORMATION
  Report Type: Spontaneous
  Country: US (occurrence: None)
  Receive Date: 20221013
  Receipt Date: 20221013
  Transmission Date: 20230112
  Serious: No
  Sender: FDA-Public Use
  Company Number: 2022A317327

PATIENT
  Sex: Male
  Weight: 90.7 kg

DRUGS (2)
  1. FARXIGA [Suspect]
     Active Substance: DAPAGLIFLOZIN PROPANEDIOL
     Indication: Renal impairment
     Route: 048
     Dates: start: 2021
  2. INSULIN NOS [Concomitant]
     Active Substance: INSULIN NOS

REACTIONS (5)
  - Renal impairment [Unknown]
  - Human epidermal growth factor receptor decreased [Unknown]
  - Product dose omission issue [Unknown]
  - Body height decreased [Unknown]
  - Insurance issue [Unknown]
